FAERS Safety Report 23630331 (Version 2)
Quarter: 2025Q1

REPORT INFORMATION
  Report Type: Spontaneous
  Country: FR (occurrence: FR)
  Receive Date: 20240314
  Receipt Date: 20250228
  Transmission Date: 20250408
  Serious: Yes (Congenital Anomaly)
  Sender: TEVA
  Company Number: None

PATIENT
  Sex: Male
  Weight: 3.97 kg

DRUGS (1)
  1. LOSARTAN [Suspect]
     Active Substance: LOSARTAN
     Indication: Hypertension
     Route: 064
     Dates: start: 20230107, end: 20230310

REACTIONS (6)
  - Atrial septal defect [Not Recovered/Not Resolved]
  - Kidney malformation [Not Recovered/Not Resolved]
  - Patent ductus arteriosus [Not Recovered/Not Resolved]
  - Ventricular septal defect [Not Recovered/Not Resolved]
  - Maternal exposure during pregnancy [Recovered/Resolved]
  - Polyhydramnios [Recovered/Resolved]

NARRATIVE: CASE EVENT DATE: 20230107
